FAERS Safety Report 10547775 (Version 1)
Quarter: 2014Q4

REPORT INFORMATION
  Report Type: Spontaneous
  Country: US (occurrence: None)
  Receive Date: 20141027
  Receipt Date: 20141027
  Transmission Date: 20150529
  Serious: Yes (Life-Threatening)
  Sender: FDA-Public Use
  Company Number: None

PATIENT
  Age: 87 Year
  Sex: Male
  Weight: 107.7 kg

DRUGS (1)
  1. SIMVASTATIN. [Suspect]
     Active Substance: SIMVASTATIN
     Indication: HYPERLIPIDAEMIA
     Route: 048
     Dates: start: 20140331, end: 20140708

REACTIONS (5)
  - Hyperbilirubinaemia [None]
  - Blood alkaline phosphatase increased [None]
  - Jaundice [None]
  - Transaminases increased [None]
  - Cholestasis [None]

NARRATIVE: CASE EVENT DATE: 20140702
